FAERS Safety Report 18079581 (Version 1)
Quarter: 2020Q3

REPORT INFORMATION
  Report Type: Spontaneous
  Country: US (occurrence: US)
  Receive Date: 20200728
  Receipt Date: 20200728
  Transmission Date: 20201103
  Serious: No
  Sender: FDA-Public Use
  Company Number: US-ALLERGAN-2000085US

PATIENT
  Sex: Male

DRUGS (1)
  1. MORPHINE SULFATE UNK [Suspect]
     Active Substance: MORPHINE SULFATE
     Indication: PRODUCT USED FOR UNKNOWN INDICATION
     Dosage: BUB
     Dates: start: 2014

REACTIONS (5)
  - Nausea [Unknown]
  - Hypersensitivity [Unknown]
  - Blood pressure increased [Unknown]
  - Anxiety [Unknown]
  - Spinal stenosis [Unknown]

NARRATIVE: CASE EVENT DATE: 2014
